FAERS Safety Report 10903482 (Version 1)
Quarter: 2015Q1

REPORT INFORMATION
  Report Type: Spontaneous
  Country: US (occurrence: None)
  Receive Date: 20150304
  Receipt Date: 20150304
  Transmission Date: 20150721
  Serious: Yes (Hospitalization, Other)
  Sender: FDA-Public Use
  Company Number: BCC-MW15001

PATIENT
  Age: 74 Year
  Sex: Female

DRUGS (3)
  1. OMNIPAQUE [Suspect]
     Active Substance: IOHEXOL
  2. BETAMETHASONE SODIUM PHOSPHATE (PF) CLEAR/LOWPH 6MG/ML [Suspect]
     Active Substance: BETAMETHASONE SODIUM PHOSPHATE
     Dosage: INJECTED EPIDURAL
     Route: 008
     Dates: start: 20150217
  3. MARCAINE [Suspect]
     Active Substance: BUPIVACAINE HYDROCHLORIDE

REACTIONS (3)
  - Pyrexia [None]
  - Muscle rigidity [None]
  - Headache [None]

NARRATIVE: CASE EVENT DATE: 20150219
